FAERS Safety Report 23897517 (Version 1)
Quarter: 2024Q2

REPORT INFORMATION
  Report Type: Other
  Country: US (occurrence: US)
  Receive Date: 20240524
  Receipt Date: 20240524
  Transmission Date: 20240715
  Serious: No
  Sender: FDA-Public Use
  Company Number: US-SCIEGENP-2024SCSPO00269

PATIENT

DRUGS (1)
  1. CARBIDOPA\LEVODOPA [Suspect]
     Active Substance: CARBIDOPA\LEVODOPA
     Indication: Product used for unknown indication
     Dosage: BOTTLES OF 100 TABLETS
     Route: 065

REACTIONS (5)
  - Product residue present [Unknown]
  - Drug ineffective [Unknown]
  - Product substitution issue [Unknown]
  - Product solubility abnormal [Unknown]
  - Therapeutic response changed [Unknown]
